FAERS Safety Report 12887425 (Version 16)
Quarter: 2018Q4

REPORT INFORMATION
  Report Type: Report from Study
  Country: BR (occurrence: BR)
  Receive Date: 20161026
  Receipt Date: 20181226
  Transmission Date: 20190204
  Serious: Yes (Hospitalization, Other)
  Sender: FDA-Public Use
  Company Number: PHHY2016BR143122

PATIENT
  Sex: Female
  Weight: 52 kg

DRUGS (7)
  1. SANDOSTATIN LAR DEPOT [Suspect]
     Active Substance: OCTREOTIDE ACETATE
     Indication: GASTRIC CANCER
     Dosage: 20 MG, UNK
     Route: 065
  2. SANDOSTATIN LAR DEPOT [Suspect]
     Active Substance: OCTREOTIDE ACETATE
     Dosage: 30 MG, QMO
     Route: 030
     Dates: start: 201504
  3. DROXAINE [Concomitant]
     Active Substance: ALUMINUM HYDROXIDE\MAGNESIUM OXIDE\OXETHAZAINE
     Indication: GASTRITIS
     Route: 065
  4. SANDOSTATIN LAR DEPOT [Suspect]
     Active Substance: OCTREOTIDE ACETATE
     Dosage: UNK, QMO
     Route: 065
     Dates: start: 20181113
  5. SANDOSTATIN LAR DEPOT [Suspect]
     Active Substance: OCTREOTIDE ACETATE
     Indication: BENIGN OVARIAN TUMOUR
     Dosage: 20 MG, UNK
     Route: 065
     Dates: start: 20150417
  6. SANDOSTATIN LAR DEPOT [Suspect]
     Active Substance: OCTREOTIDE ACETATE
     Indication: NEUROENDOCRINE TUMOUR
     Dosage: 30 MG, QMO (ONCE A MONTH)
     Route: 030
  7. HIDROXIL [Concomitant]
     Active Substance: ALUMINUM HYDROXIDE
     Indication: GASTRITIS
     Dosage: 1 DF, TID (ONE TABELSPOON)
     Route: 065

REACTIONS (25)
  - Malignant neoplasm progression [Unknown]
  - Intracardiac thrombus [Recovered/Resolved]
  - Weight increased [Unknown]
  - Confusional state [Unknown]
  - Gait disturbance [Unknown]
  - Eating disorder [Unknown]
  - Fatigue [Recovered/Resolved]
  - Product storage error [Unknown]
  - Post procedural complication [Recovering/Resolving]
  - Weight decreased [Recovering/Resolving]
  - Asthenia [Recovered/Resolved]
  - Angina pectoris [Recovered/Resolved]
  - Product use in unapproved indication [Unknown]
  - Liver disorder [Unknown]
  - Metastases to liver [Unknown]
  - Abdominal pain upper [Unknown]
  - Abdominal discomfort [Recovering/Resolving]
  - Pain [Recovering/Resolving]
  - Dyspnoea [Unknown]
  - Nodule [Recovering/Resolving]
  - Hepatic mass [Recovering/Resolving]
  - Pelvic discomfort [Unknown]
  - Cataract [Unknown]
  - Metastases to diaphragm [Unknown]
  - Diaphragmatic disorder [Unknown]

NARRATIVE: CASE EVENT DATE: 2016
